FAERS Safety Report 19629652 (Version 2)
Quarter: 2021Q3

REPORT INFORMATION
  Report Type: Spontaneous
  Country: US (occurrence: US)
  Receive Date: 20210728
  Receipt Date: 20210804
  Transmission Date: 20211014
  Serious: Yes (Death, Hospitalization, Other)
  Sender: FDA-Public Use
  Company Number: US-B.I. PHARMACEUTICALS,INC./RIDGEFIELD-2021-BI-118193

PATIENT
  Sex: Male

DRUGS (1)
  1. GILOTRIF [Suspect]
     Active Substance: AFATINIB
     Indication: LUNG NEOPLASM MALIGNANT

REACTIONS (6)
  - Rash vesicular [Recovering/Resolving]
  - Diarrhoea [Unknown]
  - Skin exfoliation [Unknown]
  - Malignant neoplasm progression [Fatal]
  - Dermatitis [Unknown]
  - Dehydration [Unknown]
